FAERS Safety Report 16736728 (Version 1)
Quarter: 2019Q3

REPORT INFORMATION
  Report Type: Spontaneous
  Country: DE (occurrence: DE)
  Receive Date: 20190823
  Receipt Date: 20190823
  Transmission Date: 20191005
  Serious: Yes (Other)
  Sender: FDA-Public Use
  Company Number: DE-PERRIGO-19DE009964

PATIENT
  Sex: Female

DRUGS (5)
  1. HETASTARCH. [Concomitant]
     Active Substance: HETASTARCH
     Indication: PRODUCT USED FOR UNKNOWN INDICATION
     Dosage: UNK (3RD TRIMESTER)
     Route: 065
  2. ACETAMINOPHEN. [Suspect]
     Active Substance: ACETAMINOPHEN
     Indication: MIGRAINE
     Dosage: 1000 MG, QD
     Route: 048
  3. ERYTHROMYCIN. [Concomitant]
     Active Substance: ERYTHROMYCIN
     Indication: ACNE
     Dosage: UNK
     Route: 065
  4. FLUOROMETHOLONE. [Concomitant]
     Active Substance: FLUOROMETHOLONE
     Indication: CONJUNCTIVITIS
     Dosage: UNK (1ST TRIMESTER)
     Route: 065
  5. CORTISONE [Concomitant]
     Active Substance: CORTISONE
     Indication: FOETAL GROWTH RESTRICTION
     Dosage: UNK (3RD TRIMESTER)
     Route: 065

REACTIONS (2)
  - Placental insufficiency [Recovered/Resolved]
  - Oligohydramnios [Recovered/Resolved]
